FAERS Safety Report 25976502 (Version 1)
Quarter: 2025Q4

REPORT INFORMATION
  Report Type: Spontaneous
  Country: US (occurrence: US)
  Receive Date: 20251029
  Receipt Date: 20251029
  Transmission Date: 20260118
  Serious: Yes (Hospitalization)
  Sender: VERASTEM
  Company Number: US-VERASTEM-251021US-AFCPK-00727

PATIENT

DRUGS (1)
  1. AVMAPKI FAKZYNJA CO-PACK [Suspect]
     Active Substance: AVUTOMETINIB POTASSIUM\DEFACTINIB HYDROCHLORIDE
     Indication: Product used for unknown indication
     Dosage: 08-200 CAPSULE 2TW
     Route: 048

REACTIONS (2)
  - Cardiac disorder [Unknown]
  - Illness [Unknown]

NARRATIVE: CASE EVENT DATE: 20250925
